FAERS Safety Report 17784658 (Version 2)
Quarter: 2020Q4

REPORT INFORMATION
  Report Type: Report from Study
  Country: US (occurrence: US)
  Receive Date: 20200514
  Receipt Date: 20201016
  Transmission Date: 20210113
  Serious: Yes (Other)
  Sender: FDA-Public Use
  Company Number: US-JNJFOC-20190133977

PATIENT
  Age: 64 Year
  Sex: Male

DRUGS (22)
  1. ERDAFITINIB. [Suspect]
     Active Substance: ERDAFITINIB
     Route: 048
     Dates: start: 201905
  2. ACETAMINOPHEN. [Concomitant]
     Active Substance: ACETAMINOPHEN
     Indication: HEADACHE
     Route: 048
     Dates: start: 201801
  3. TETRAHYDROZOLINE [Concomitant]
     Active Substance: TETRAHYDROZOLINE
     Indication: OCULAR HYPERAEMIA
     Dates: start: 1993
  4. ACETAMINOPHEN. [Concomitant]
     Active Substance: ACETAMINOPHEN
     Indication: GENITAL PAIN
  5. RANITIDINE. [Concomitant]
     Active Substance: RANITIDINE
     Indication: GASTROOESOPHAGEAL REFLUX DISEASE
     Route: 048
     Dates: start: 201802
  6. ERDAFITINIB. [Suspect]
     Active Substance: ERDAFITINIB
     Route: 048
     Dates: start: 20190103, end: 20190305
  7. BIOTIN [Concomitant]
     Active Substance: BIOTIN
     Indication: ALOPECIA
     Route: 048
     Dates: start: 2017
  8. ATORVASTATIN [Concomitant]
     Active Substance: ATORVASTATIN
     Indication: HYPERLIPIDAEMIA
     Route: 048
     Dates: start: 1993
  9. ASCORBIC ACID. [Concomitant]
     Active Substance: ASCORBIC ACID
     Indication: NUTRITIONAL SUPPLEMENTATION
     Route: 048
     Dates: start: 2016, end: 20190113
  10. DOCUSATE [Concomitant]
     Active Substance: DOCUSATE
     Indication: CONSTIPATION
     Route: 048
     Dates: start: 2016
  11. LABETALOL [Concomitant]
     Active Substance: LABETALOL\LABETALOL HYDROCHLORIDE
     Indication: HYPERTENSION
     Route: 048
     Dates: start: 2003
  12. POLYETHYLENE GLYCOL [Concomitant]
     Active Substance: POLYETHYLENE GLYCOLS
     Indication: CONSTIPATION
     Route: 048
     Dates: start: 2016
  13. VERAPAMIL [Concomitant]
     Active Substance: VERAPAMIL HYDROCHLORIDE
     Indication: HYPERTENSION
     Route: 048
     Dates: start: 1983
  14. ERDAFITINIB. [Suspect]
     Active Substance: ERDAFITINIB
     Route: 048
     Dates: start: 20190319, end: 20190425
  15. HYDRALAZINE [Concomitant]
     Active Substance: HYDRALAZINE HYDROCHLORIDE
     Indication: HYPERTENSION
     Route: 048
     Dates: start: 201709
  16. K-TAB [Concomitant]
     Active Substance: POTASSIUM CHLORIDE
     Indication: HYPOKALAEMIA
     Route: 048
     Dates: start: 201704, end: 20190104
  17. MAGNESIUM [Concomitant]
     Active Substance: MAGNESIUM
     Indication: HYPOMAGNESAEMIA
     Route: 048
     Dates: start: 2017, end: 20190104
  18. ASPIRIN. [Concomitant]
     Active Substance: ASPIRIN
     Indication: PROPHYLAXIS
     Route: 048
     Dates: start: 1998
  19. TRIAMCINOLONE [Concomitant]
     Active Substance: TRIAMCINOLONE
     Indication: RASH MACULO-PAPULAR
     Route: 061
     Dates: start: 201809
  20. ERDAFITINIB. [Suspect]
     Active Substance: ERDAFITINIB
     Indication: TRANSITIONAL CELL CARCINOMA
     Route: 048
     Dates: start: 20181212, end: 20181227
  21. COENZYME Q10 [Concomitant]
     Active Substance: DIETARY SUPPLEMENT\UBIDECARENONE
     Indication: NUTRITIONAL SUPPLEMENTATION
     Route: 048
     Dates: start: 2016
  22. TRAMADOL. [Concomitant]
     Active Substance: TRAMADOL
     Indication: GENITAL PAIN
     Route: 048
     Dates: start: 20181208

REACTIONS (19)
  - Renal disorder [Recovering/Resolving]
  - Nephrostomy [Recovered/Resolved]
  - Stomatitis [Recovering/Resolving]
  - Diarrhoea [Unknown]
  - Nail discomfort [Unknown]
  - Dry mouth [Unknown]
  - Dry eye [Unknown]
  - Dizziness [Unknown]
  - Pruritus [Not Recovered/Not Resolved]
  - Headache [Unknown]
  - Hypotension [Recovered/Resolved]
  - Oesophagogastroduodenoscopy [Recovered/Resolved]
  - Dysgeusia [Unknown]
  - Lacrimation increased [Unknown]
  - Urinary tract disorder [Recovering/Resolving]
  - Palmar-plantar erythrodysaesthesia syndrome [Unknown]
  - Blood phosphorus increased [Recovered/Resolved]
  - Onychomadesis [Unknown]
  - Scrotal dermatitis [Recovering/Resolving]

NARRATIVE: CASE EVENT DATE: 20181219
